FAERS Safety Report 16742786 (Version 2)
Quarter: 2020Q3

REPORT INFORMATION
  Report Type: Spontaneous
  Country: CA (occurrence: CA)
  Receive Date: 20190826
  Receipt Date: 20200729
  Transmission Date: 20201102
  Serious: Yes (Other)
  Sender: FDA-Public Use
  Company Number: CA-CELLTRION INC.-2018CA022424

PATIENT

DRUGS (6)
  1. INFLECTRA [Suspect]
     Active Substance: INFLIXIMAB-DYYB
     Dosage: 200 MG, EVERY 8 WEEKS
     Route: 042
     Dates: start: 20190429
  2. INFLECTRA [Suspect]
     Active Substance: INFLIXIMAB-DYYB
     Dosage: 200 MG, EVERY 8 WEEKS
     Route: 042
     Dates: start: 20190625
  3. INFLECTRA [Suspect]
     Active Substance: INFLIXIMAB-DYYB
     Indication: ANKYLOSING SPONDYLITIS
     Dosage: 200 MG, EVERY 8 WEEKS
     Route: 042
     Dates: start: 20180910
  4. INFLECTRA [Suspect]
     Active Substance: INFLIXIMAB-DYYB
     Dosage: 200 MG, EVERY 8 WEEKS
     Route: 042
     Dates: start: 20200721
  5. IBUPROFEN. [Concomitant]
     Active Substance: IBUPROFEN
     Dosage: 600 MG, ONCE DAILY (4 TABS)
     Route: 048
     Dates: start: 1999
  6. CODEINE CONTIN [Concomitant]
     Active Substance: CODEINE SULFATE
     Dosage: 50 MG, 2X/DAY(3 WEEKS AGO)
     Route: 048
     Dates: start: 20180806

REACTIONS (6)
  - Product use issue [Unknown]
  - Blood pressure fluctuation [Not Recovered/Not Resolved]
  - Uveitis [Recovered/Resolved]
  - Intentional product use issue [Unknown]
  - Heart rate decreased [Unknown]
  - Off label use [Unknown]

NARRATIVE: CASE EVENT DATE: 20180910
